FAERS Safety Report 16633712 (Version 1)
Quarter: 2019Q3

REPORT INFORMATION
  Report Type: Spontaneous
  Country: US (occurrence: US)
  Receive Date: 20190725
  Receipt Date: 20190725
  Transmission Date: 20191004
  Serious: No
  Sender: FDA-Public Use
  Company Number: None

PATIENT
  Age: 7 Year
  Sex: Male
  Weight: 25.65 kg

DRUGS (4)
  1. ALLEGRA OTC CHILDRENS ALLERGY [Concomitant]
  2. FLOVENT HFA [Suspect]
     Active Substance: FLUTICASONE PROPIONATE
     Indication: ASTHMA
     Dosage: ?          QUANTITY:2 PUFF(S);?
     Route: 055
     Dates: start: 20190517, end: 20190725
  3. ALBUTERNOL INHALER [Concomitant]
  4. NEBULIZER MIST [Concomitant]

REACTIONS (1)
  - Tooth hypoplasia [None]

NARRATIVE: CASE EVENT DATE: 20190724
